FAERS Safety Report 9163672 (Version 1)
Quarter: 2013Q1

REPORT INFORMATION
  Report Type: Spontaneous
  Country: IT (occurrence: IT)
  Receive Date: 20130314
  Receipt Date: 20130314
  Transmission Date: 20140127
  Serious: Yes (Hospitalization)
  Sender: FDA-Public Use
  Company Number: IT-NOVOPROD-369810

PATIENT
  Age: 91 Year
  Sex: Female

DRUGS (8)
  1. NOVONORM [Suspect]
     Indication: TYPE 2 DIABETES MELLITUS
     Dosage: 3 TAB, QD
     Route: 048
     Dates: start: 20111114, end: 20121113
  2. OMEPRAZOL                          /00661201/ [Concomitant]
     Dosage: 20 MG, QD
  3. CLOPIDOGREL [Concomitant]
     Dosage: 75 MG, QD
  4. NITROGLICERINA [Concomitant]
     Dosage: 10 MG, QD
  5. FUROSEMIDE [Concomitant]
     Dosage: 100 MG, QD
  6. EUTIROX [Concomitant]
     Dosage: 75 UG, UNK
  7. ENAPREN [Concomitant]
     Dosage: 5 MG, QD
  8. SEQUACOR [Concomitant]
     Dosage: 1.25 MG, QD

REACTIONS (2)
  - Renal failure chronic [Unknown]
  - Hypoglycaemia [Not Recovered/Not Resolved]
